FAERS Safety Report 4618196-5 (Version None)
Quarter: 2005Q1

REPORT INFORMATION
  Report Type: 
  Country: None (occurrence: None)
  Receive Date: 20050322
  Receipt Date: 20050309
  Transmission Date: 20050727
  Serious: Yes (Life-Threatening, Hospitalization, Other)
  Sender: FDA-Public Use
  Company Number: 2005039895

PATIENT
  Age: 64 Year
  Sex: Male
  Weight: 63 kg

DRUGS (6)
  1. SULPERAZON (SULBACTAM, CEFOPERAZONE) [Suspect]
     Indication: POSTOPERATIVE CARE
     Dosage: 1 GRAM (1 GRAM, 1 IN 1 D), INTRAVENOUS
     Route: 042
  2. NEO-PERCAMIN-S (CINCHOCAINE, TETRACAINE) [Suspect]
     Indication: ANAESTHESIA
     Dosage: 1 IN 1 D, TOPICAL
     Route: 061
     Dates: start: 20050223, end: 20050223
  3. LACTATED RINGER'S [Concomitant]
  4. HYDROXYZINE HCL [Concomitant]
  5. TRANEXAMIC ACID (TRANEXAMIC ACID) [Concomitant]
  6. PENTAZOCINE LACTATE [Concomitant]

REACTIONS (5)
  - BLOOD PRESSURE DECREASED [None]
  - COLD SWEAT [None]
  - LOSS OF CONSCIOUSNESS [None]
  - NAUSEA [None]
  - RESPIRATORY ARREST [None]
